FAERS Safety Report 4937595-5 (Version None)
Quarter: 2006Q1

REPORT INFORMATION
  Report Type: 
  Country: None (occurrence: None)
  Receive Date: 20060306
  Receipt Date: 20060221
  Transmission Date: 20060701
  Serious: Yes (Disabling)
  Sender: FDA-Public Use
  Company Number: 163-20785-04080593

PATIENT
  Age: 82 Year
  Sex: Male

DRUGS (7)
  1. THALOMID [Suspect]
     Indication: MULTIPLE MYELOMA
     Dosage: 100-150 MG, DAILY, ORAL
     Route: 048
     Dates: start: 20031101
  2. ZOMETA [Concomitant]
  3. PROCRIT (ERYTHPROPOIETIN) [Concomitant]
  4. DEXAMETHASONE [Concomitant]
  5. MECLIZINE [Concomitant]
  6. LORAZEPAM [Concomitant]
  7. CALCIUM WITH VITAMIN D (CALCIUM WITH VITAMIN D) [Concomitant]

REACTIONS (10)
  - ABASIA [None]
  - AGITATION [None]
  - ASTHENIA [None]
  - DEPRESSION [None]
  - DIZZINESS [None]
  - HYPOAESTHESIA [None]
  - OEDEMA PERIPHERAL [None]
  - PARAESTHESIA [None]
  - SOMNOLENCE [None]
  - TINNITUS [None]
